FAERS Safety Report 7465910-X (Version None)
Quarter: 2011Q2

REPORT INFORMATION
  Report Type: 
  Country: None (occurrence: None)
  Receive Date: 20110509
  Receipt Date: 20110429
  Transmission Date: 20111010
  Serious: Yes (Hospitalization, Other)
  Sender: FDA-Public Use
  Company Number: BR-SANOFI-AVENTIS-2011SA001935

PATIENT
  Age: 69 Year
  Sex: Male
  Weight: 113.5 kg

DRUGS (15)
  1. AMLODIPINE BESYLATE [Concomitant]
     Indication: BLOOD PRESSURE
     Route: 048
  2. BENERVA [Concomitant]
     Route: 048
  3. FOLIC ACID [Concomitant]
     Route: 048
  4. CALCITRIOL [Concomitant]
     Route: 048
  5. ASPIRIN [Concomitant]
     Route: 048
  6. ALL OTHER THERAPEUTIC PRODUCTS [Concomitant]
     Route: 048
  7. ATENSINA [Concomitant]
     Indication: BLOOD PRESSURE
     Route: 048
  8. VITAMIN E [Concomitant]
     Route: 048
  9. ATENOLOL [Concomitant]
     Route: 048
  10. LANTUS [Suspect]
     Indication: TYPE 2 DIABETES MELLITUS
     Route: 058
  11. INSULIN [Suspect]
  12. AAS INFANTIL [Concomitant]
     Route: 048
  13. CALCITRIOL [Concomitant]
     Route: 048
  14. ACETYLCYSTEINE [Concomitant]
     Indication: RENAL DISORDER
     Route: 048
  15. INSULIN [Concomitant]
     Indication: TYPE 2 DIABETES MELLITUS
     Route: 058

REACTIONS (9)
  - BLOOD CREATININE INCREASED [None]
  - RENAL DISORDER [None]
  - CARDIAC DISORDER [None]
  - BLOOD UREA INCREASED [None]
  - RENAL IMPAIRMENT [None]
  - HAEMODIALYSIS [None]
  - FEELING ABNORMAL [None]
  - BLOOD POTASSIUM INCREASED [None]
  - ADVERSE REACTION [None]
